FAERS Safety Report 4703963-X (Version None)
Quarter: 2005Q2

REPORT INFORMATION
  Report Type: 
  Country: None (occurrence: None)
  Receive Date: 20050630
  Receipt Date: 20050309
  Transmission Date: 20051028
  Serious: Yes (Hospitalization)
  Sender: FDA-Public Use
  Company Number: US-MERCK-0503USA01758

PATIENT
  Age: 65 Year
  Sex: Female
  Weight: 68 kg

DRUGS (7)
  1. VIOXX [Suspect]
     Indication: ARTHRITIS
     Route: 048
     Dates: start: 20010101, end: 20040101
  2. VIOXX [Suspect]
     Indication: BACK PAIN
     Route: 048
     Dates: start: 20010101, end: 20040101
  3. PREMARIN [Concomitant]
     Indication: MENOPAUSE
     Route: 065
     Dates: start: 19800101
  4. DYAZIDE [Concomitant]
     Indication: HYPOTHYROIDISM
     Route: 065
     Dates: start: 19900101
  5. SYNTHROID [Concomitant]
     Indication: HYPOTHYROIDISM
     Route: 065
  6. ASPIRIN [Concomitant]
     Route: 065
  7. CYTOMEL [Concomitant]
     Indication: HYPOTHYROIDISM
     Route: 065

REACTIONS (8)
  - BLOOD CHOLESTEROL INCREASED [None]
  - CHEST PAIN [None]
  - CORONARY ARTERY DISEASE [None]
  - HEART RATE IRREGULAR [None]
  - HYPERTENSION [None]
  - MYOCARDIAL INFARCTION [None]
  - PAIN [None]
  - ROTATOR CUFF SYNDROME [None]
